FAERS Safety Report 9332634 (Version 2)
Quarter: 2013Q2

REPORT INFORMATION
  Report Type: Spontaneous
  Country: JP (occurrence: JP)
  Receive Date: 20130606
  Receipt Date: 20130619
  Transmission Date: 20140414
  Serious: Yes (Death, Hospitalization)
  Sender: FDA-Public Use
  Company Number: JP-ROCHE-566912

PATIENT
  Age: 38 Year
  Sex: Male
  Weight: 68 kg

DRUGS (18)
  1. AVASTIN [Suspect]
     Indication: COLON CANCER METASTATIC
     Route: 041
     Dates: start: 20071122, end: 20071220
  2. AVASTIN [Suspect]
     Indication: COLON CANCER METASTATIC
     Route: 041
     Dates: start: 20080110, end: 20080110
  3. AVASTIN [Suspect]
     Indication: COLON CANCER METASTATIC
     Route: 041
     Dates: start: 20080124, end: 20080306
  4. AVASTIN [Suspect]
     Indication: COLON CANCER METASTATIC
     Route: 041
     Dates: start: 20080328, end: 20080328
  5. AVASTIN [Suspect]
     Indication: COLON CANCER METASTATIC
     Route: 041
     Dates: start: 20080410, end: 20080410
  6. 5-FU [Concomitant]
     Indication: COLON CANCER METASTATIC
     Route: 040
     Dates: start: 20080124, end: 20080328
  7. 5-FU [Concomitant]
     Indication: COLON CANCER METASTATIC
     Route: 041
     Dates: start: 20071122, end: 20080112
  8. 5-FU [Concomitant]
     Indication: COLON CANCER METASTATIC
     Route: 040
     Dates: start: 20080410, end: 20080410
  9. 5-FU [Concomitant]
     Indication: COLON CANCER METASTATIC
     Route: 041
     Dates: start: 20080124, end: 20080330
  10. 5-FU [Concomitant]
     Indication: COLON CANCER METASTATIC
     Route: 041
     Dates: start: 20080410, end: 20080412
  11. ISOVORIN [Concomitant]
     Indication: COLON CANCER METASTATIC
     Route: 041
     Dates: start: 20071122, end: 20080110
  12. ISOVORIN [Concomitant]
     Indication: COLON CANCER METASTATIC
     Dosage: UNCERTAINTY
     Route: 041
     Dates: start: 20080124, end: 20080328
  13. ISOVORIN [Concomitant]
     Indication: COLON CANCER METASTATIC
     Route: 041
     Dates: start: 20080410, end: 20080410
  14. ELPLAT [Concomitant]
     Indication: COLON CANCER METASTATIC
     Route: 041
     Dates: start: 20071122, end: 20080110
  15. CAMPTO [Concomitant]
     Indication: COLON CANCER METASTATIC
     Dosage: UNCERTAINTY
     Route: 041
     Dates: start: 20080124, end: 20080328
  16. CAMPTO [Concomitant]
     Indication: COLON CANCER METASTATIC
     Route: 041
     Dates: start: 20080410, end: 20080410
  17. DECADRON [Concomitant]
     Indication: PROPHYLAXIS OF NAUSEA AND VOMITING
     Route: 041
     Dates: start: 20080410, end: 20080412
  18. KYTRIL [Concomitant]
     Indication: PROPHYLAXIS OF NAUSEA AND VOMITING
     Route: 041
     Dates: start: 20080410, end: 20080412

REACTIONS (4)
  - Hepatic failure [Fatal]
  - Metastases to liver [Fatal]
  - Gastric perforation [Recovering/Resolving]
  - Abdominal abscess [Recovering/Resolving]
